FAERS Safety Report 7768703-9 (Version None)
Quarter: 2011Q3

REPORT INFORMATION
  Report Type: 
  Country: None (occurrence: None)
  Receive Date: 20110922
  Receipt Date: 20110418
  Transmission Date: 20111222
  Serious: Yes (Other)
  Sender: FDA-Public Use
  Company Number: US-ASTRAZENECA-2007UW06510

PATIENT
  Age: 15398 Day
  Sex: Female
  Weight: 86.6 kg

DRUGS (17)
  1. SINGULAIR [Concomitant]
     Dates: start: 20030312
  2. SEROQUEL [Suspect]
     Indication: DEPRESSION
     Route: 048
     Dates: start: 20030828
  3. PAXIL [Concomitant]
     Dates: start: 20000101
  4. SEROQUEL [Suspect]
     Indication: BIPOLAR DISORDER
     Route: 048
     Dates: start: 20030828
  5. SEROQUEL [Suspect]
     Dosage: 100 TO 800 MG
     Route: 048
     Dates: start: 20030828
  6. SEROQUEL [Suspect]
     Dosage: 100 TO 800 MG
     Route: 048
     Dates: start: 20030828
  7. LEXAPRO [Concomitant]
     Dates: start: 20050101
  8. ZYPREXA [Concomitant]
     Dates: start: 20030101
  9. RISPERDAL [Concomitant]
     Dates: start: 20030225
  10. MIRTAZAPINE [Concomitant]
     Dates: start: 20030211
  11. ALPRAZOLAM [Concomitant]
     Dates: start: 20030606
  12. AMITRIPTYLINE HCL [Concomitant]
  13. SEROQUEL [Suspect]
     Dosage: 100 TO 800 MG
     Route: 048
     Dates: start: 20030828
  14. HALDOL [Concomitant]
     Dates: start: 20050101
  15. CITALOPRAM HYDROBROMIDE [Concomitant]
  16. SEROQUEL [Suspect]
     Indication: SCHIZOPHRENIA
     Route: 048
     Dates: start: 20030828
  17. PROZAC [Concomitant]

REACTIONS (5)
  - PANCREATITIS [None]
  - TYPE 2 DIABETES MELLITUS [None]
  - HYPERLIPIDAEMIA [None]
  - BLOOD CHOLESTEROL INCREASED [None]
  - KETOACIDOSIS [None]
